FAERS Safety Report 7444720-3 (Version None)
Quarter: 2011Q2

REPORT INFORMATION
  Report Type: 
  Country: None (occurrence: None)
  Receive Date: 20110426
  Receipt Date: 20110426
  Transmission Date: 20111010
  Serious: Yes (Death)
  Sender: FDA-Public Use
  Company Number: None

PATIENT
  Sex: Female
  Weight: 66.1 kg

DRUGS (8)
  1. GABAPENTIN [Concomitant]
  2. REVLIMID [Suspect]
     Indication: MULTIPLE MYELOMA
     Dosage: 25 MG DAILY ORALLY
     Route: 048
     Dates: start: 20080301, end: 20100901
  3. MORPHINE [Concomitant]
  4. FAMOTIDINE [Concomitant]
  5. PERCOCET [Concomitant]
  6. ONDANSETRON [Concomitant]
  7. FERROUS SULFATE TAB [Concomitant]
  8. AMITRIPTYLINE HCL [Concomitant]

REACTIONS (4)
  - NEUTROPHIL COUNT DECREASED [None]
  - PLATELET COUNT DECREASED [None]
  - NEOPLASM PROGRESSION [None]
  - MULTIPLE MYELOMA [None]
